FAERS Safety Report 23777681 (Version 2)
Quarter: 2024Q2

REPORT INFORMATION
  Report Type: Report from Study
  Country: JP (occurrence: JP)
  Receive Date: 20240424
  Receipt Date: 20240603
  Transmission Date: 20240715
  Serious: Yes (Hospitalization)
  Sender: FDA-Public Use
  Company Number: JP-ARGENX-2022-ARGX-JP002047AA

PATIENT

DRUGS (9)
  1. VYVGART [Suspect]
     Active Substance: EFGARTIGIMOD ALFA-FCAB
     Indication: Myasthenia gravis
     Dosage: 800 MG
     Route: 042
     Dates: start: 20220927, end: 20221018
  2. VYVGART [Suspect]
     Active Substance: EFGARTIGIMOD ALFA-FCAB
     Dosage: 800 MG
     Route: 042
     Dates: start: 20221122, end: 20221206
  3. PREDNISOLONE [Concomitant]
     Active Substance: PREDNISOLONE
     Indication: Myasthenia gravis
     Dosage: 15 MG, DAILY
     Route: 048
     Dates: start: 20140207
  4. MESTINON [Concomitant]
     Active Substance: PYRIDOSTIGMINE BROMIDE
     Indication: Myasthenia gravis
     Dosage: 120 MG, BID
     Route: 048
     Dates: start: 20180928
  5. METFORMIN HYDROCHLORIDE [Concomitant]
     Active Substance: METFORMIN HYDROCHLORIDE
     Indication: Product used for unknown indication
     Dosage: 250 MG, TID
     Route: 048
     Dates: start: 20160513
  6. ATORVASTATIN [Concomitant]
     Active Substance: ATORVASTATIN
     Indication: Hyperlipidaemia
     Dosage: 5 MG, DAILY
     Route: 048
     Dates: start: 20160902
  7. NEXIUM [Concomitant]
     Active Substance: ESOMEPRAZOLE MAGNESIUM
     Indication: Product used for unknown indication
     Dosage: 10 MG, DAILY
     Route: 048
     Dates: start: 20170310
  8. AROTINOLOL HYDROCHLORIDE [Concomitant]
     Active Substance: AROTINOLOL HYDROCHLORIDE
     Indication: Essential hypertension
     Dosage: 10 MG, BID
     Route: 048
     Dates: start: 20181226
  9. AMLODIPINE [Concomitant]
     Active Substance: AMLODIPINE BESYLATE
     Indication: Essential hypertension
     Dosage: 5 MG, DAILY
     Route: 048
     Dates: start: 20180525

REACTIONS (2)
  - Myasthenia gravis [Recovered/Resolved]
  - Therapeutic product effect incomplete [Unknown]

NARRATIVE: CASE EVENT DATE: 20221110
